FAERS Safety Report 21812108 (Version 1)
Quarter: 2023Q1

REPORT INFORMATION
  Report Type: Report from Study
  Country: US (occurrence: US)
  Receive Date: 20230103
  Receipt Date: 20230103
  Transmission Date: 20230418
  Serious: No
  Sender: FDA-Public Use
  Company Number: US-ABBVIE-4222107

PATIENT
  Sex: Female

DRUGS (1)
  1. RINVOQ [Suspect]
     Active Substance: UPADACITINIB
     Indication: Psoriatic arthropathy
     Dosage: FORM STRENGTH: 15 MG, ER
     Route: 048
     Dates: start: 202209

REACTIONS (3)
  - Joint injury [Not Recovered/Not Resolved]
  - Peripheral swelling [Recovering/Resolving]
  - Pain in extremity [Recovering/Resolving]
